FAERS Safety Report 21204724 (Version 2)
Quarter: 2022Q3

REPORT INFORMATION
  Report Type: Spontaneous
  Country: US (occurrence: US)
  Receive Date: 20220812
  Receipt Date: 20220930
  Transmission Date: 20221027
  Serious: Yes (Hospitalization, Other)
  Sender: FDA-Public Use
  Company Number: US-BRISTOL-MYERS SQUIBB COMPANY-2022-089038

PATIENT
  Age: 86 Year
  Sex: Female
  Weight: 64.77 kg

DRUGS (27)
  1. REVLIMID [Suspect]
     Active Substance: LENALIDOMIDE
     Indication: Follicular lymphoma
     Dosage: FREQUENCY 21/28, 21 ON AND 7 DAYS OFF
     Route: 048
     Dates: start: 20210901
  2. REVLIMID [Suspect]
     Active Substance: LENALIDOMIDE
     Dosage: DOSE REDUCED
     Route: 048
  3. CLARITIN [Concomitant]
     Active Substance: LORATADINE
  4. HYDRALAZINE [Concomitant]
     Active Substance: HYDRALAZINE HYDROCHLORIDE
     Indication: Product used for unknown indication
     Dosage: 25 MG ORAL QID
     Route: 048
  5. NEXIUM I.V. [Concomitant]
     Active Substance: ESOMEPRAZOLE SODIUM
     Indication: Product used for unknown indication
     Route: 048
  6. LOSARTAN [Concomitant]
     Active Substance: LOSARTAN
     Indication: Product used for unknown indication
     Route: 048
  7. BUMETANIDE [Concomitant]
     Active Substance: BUMETANIDE
     Indication: Product used for unknown indication
     Dosage: 1PO EVERY OTHER DAY PRN
     Route: 048
  8. PROCHLORPERAZINE [Concomitant]
     Active Substance: PROCHLORPERAZINE
  9. DICLOFENAC [Concomitant]
     Active Substance: DICLOFENAC
  10. SYNTHROID [Concomitant]
     Active Substance: LEVOTHYROXINE SODIUM
  11. LOSARTAN [Concomitant]
     Active Substance: LOSARTAN
  12. NORCO [Concomitant]
     Active Substance: ACETAMINOPHEN\HYDROCODONE BITARTRATE
  13. MIRALAX [Concomitant]
     Active Substance: POLYETHYLENE GLYCOL 3350
  14. SIMVASTATIN [Concomitant]
     Active Substance: SIMVASTATIN
  15. VALTREX [Concomitant]
     Active Substance: VALACYCLOVIR HYDROCHLORIDE
  16. ZOFRAN [Concomitant]
     Active Substance: ONDANSETRON HYDROCHLORIDE
  17. CYCLOBENZAPRINE [Concomitant]
     Active Substance: CYCLOBENZAPRINE
  18. HYOSCYAMINE [Concomitant]
     Active Substance: HYOSCYAMINE
  19. ACIDOPHILUS [Concomitant]
     Active Substance: LACTOBACILLUS ACIDOPHILUS
  20. ROSUVASTATIN [Concomitant]
     Active Substance: ROSUVASTATIN
  21. BUMEX [Concomitant]
     Active Substance: BUMETANIDE
  22. MAGNESIUM [MAGNESIUM HYDROXIDE] [Concomitant]
  23. BACLOFEN [Concomitant]
     Active Substance: BACLOFEN
  24. POTASSIUM [Concomitant]
     Active Substance: POTASSIUM
  25. XANAX [Concomitant]
     Active Substance: ALPRAZOLAM
  26. BENZONATATE [Concomitant]
     Active Substance: BENZONATATE
  27. PREDNISONE [Concomitant]
     Active Substance: PREDNISONE

REACTIONS (2)
  - Dyspnoea [Recovering/Resolving]
  - Blood urea increased [Recovering/Resolving]

NARRATIVE: CASE EVENT DATE: 20220906
